FAERS Safety Report 6549978-0 (Version None)
Quarter: 2010Q1

REPORT INFORMATION
  Report Type: 
  Country: None (occurrence: None)
  Receive Date: 20100125
  Receipt Date: 20100119
  Transmission Date: 20100710
  Serious: Yes (Other)
  Sender: FDA-Public Use
  Company Number: US-SANOFI-AVENTIS-2009SA009396

PATIENT
  Sex: Male

DRUGS (4)
  1. MULTAQ [Suspect]
     Indication: HEART RATE INCREASED
     Route: 048
     Dates: start: 20090926, end: 20091224
  2. MULTAQ [Suspect]
     Route: 048
     Dates: start: 20090926, end: 20091224
  3. ALL OTHER THERAPEUTIC PRODUCTS [Concomitant]
     Indication: ASTHMA
  4. COUMADIN [Concomitant]

REACTIONS (2)
  - CARDIAC DISORDER [None]
  - MUSCLE INJURY [None]
